FAERS Safety Report 16673280 (Version 1)
Quarter: 2019Q3

REPORT INFORMATION
  Report Type: Spontaneous
  Country: US (occurrence: US)
  Receive Date: 20190621
  Receipt Date: 20190621
  Transmission Date: 20191004
  Serious: No
  Sender: FDA-Public Use
  Company Number: None

PATIENT
  Age: 18 Year
  Sex: Female

DRUGS (1)
  1. ENBREL [Suspect]
     Active Substance: ETANERCEPT
     Indication: ENTHESOPATHY
     Dates: start: 201904

REACTIONS (2)
  - Photosensitivity reaction [None]
  - Temperature intolerance [None]

NARRATIVE: CASE EVENT DATE: 20190614
